FAERS Safety Report 9551429 (Version 1)
Quarter: 2013Q3

REPORT INFORMATION
  Report Type: Spontaneous
  Country: US (occurrence: None)
  Receive Date: 20130724
  Receipt Date: 20130724
  Transmission Date: 20140515
  Serious: Yes (Hospitalization)
  Sender: FDA-Public Use
  Company Number: PHEH2013US006083

PATIENT
  Age: 50 Year
  Sex: Male
  Weight: 79.4 kg

DRUGS (1)
  1. GLEEVEC [Suspect]
     Indication: GASTROINTESTINAL STROMAL TUMOUR
     Route: 048
     Dates: start: 20110501

REACTIONS (6)
  - Haemorrhage [None]
  - Hypotension [None]
  - Glossodynia [None]
  - Hypoaesthesia [None]
  - Urticaria [None]
  - Rash [None]
